FAERS Safety Report 7347686-X (Version None)
Quarter: 2011Q1

REPORT INFORMATION
  Report Type: 
  Country: None (occurrence: None)
  Receive Date: 20110311
  Receipt Date: 20110302
  Transmission Date: 20110831
  Serious: Yes (Hospitalization)
  Sender: FDA-Public Use
  Company Number: B0690801A

PATIENT
  Age: 43 Year
  Sex: Female

DRUGS (8)
  1. TRANSAMIN [Concomitant]
     Dosage: 750MG PER DAY
     Route: 048
     Dates: start: 20091126, end: 20091127
  2. UNASYN [Concomitant]
     Dates: start: 20091130, end: 20091209
  3. UNSPECIFIED DRUGS [Suspect]
     Route: 065
  4. DIENOGEST [Concomitant]
     Dosage: 1MG PER DAY
     Route: 048
     Dates: start: 20090101, end: 20091209
  5. PREDONINE [Concomitant]
  6. PIPERACILLIN [Concomitant]
     Indication: DIPHTHERIA
     Dates: start: 20091127, end: 20091130
  7. AUGMENTIN '125' [Suspect]
     Indication: OROPHARYNGEAL PAIN
     Dosage: 375MG PER DAY
     Route: 048
     Dates: start: 20091126, end: 20091127
  8. CALONAL [Concomitant]
     Dosage: 600MG PER DAY
     Route: 048
     Dates: start: 20091126, end: 20091127

REACTIONS (17)
  - THROAT IRRITATION [None]
  - SCAB [None]
  - DRY EYE [None]
  - ERYTHEMA [None]
  - CHEILITIS [None]
  - MUCOSAL EROSION [None]
  - DIPHTHERIA [None]
  - TONGUE COATED [None]
  - BLEPHAROSYNECHIA [None]
  - SKIN EROSION [None]
  - ENANTHEMA [None]
  - DRUG ERUPTION [None]
  - SWELLING FACE [None]
  - FOLLICULITIS [None]
  - STEVENS-JOHNSON SYNDROME [None]
  - RASH [None]
  - EYELID FUNCTION DISORDER [None]
